FAERS Safety Report 12980743 (Version 1)
Quarter: 2016Q4

REPORT INFORMATION
  Report Type: Report from Study
  Country: None (occurrence: US)
  Receive Date: 20161128
  Receipt Date: 20161128
  Transmission Date: 20170207
  Serious: Yes (Other)
  Sender: FDA-Public Use
  Company Number: US-ABBVIE-16K-163-1743376-00

PATIENT
  Age: 59 Year
  Sex: Female
  Weight: 68.1 kg

DRUGS (11)
  1. GABAPENTIN. [Concomitant]
     Active Substance: GABAPENTIN
     Indication: PARAESTHESIA
  2. VITAMIN B12 [Concomitant]
     Active Substance: CYANOCOBALAMIN
     Indication: VITAMIN SUPPLEMENTATION
  3. VITAMIN D [Concomitant]
     Active Substance: CHOLECALCIFEROL
     Indication: HYPOVITAMINOSIS
  4. HUMIRA [Suspect]
     Active Substance: ADALIMUMAB
     Indication: RHEUMATOID ARTHRITIS
     Route: 058
  5. ALLOPURINOL. [Concomitant]
     Active Substance: ALLOPURINOL
     Indication: GOUT
  6. HUMIRA [Suspect]
     Active Substance: ADALIMUMAB
     Route: 058
  7. LISINOPRIL. [Concomitant]
     Active Substance: LISINOPRIL
     Indication: HYPERTENSION
  8. OMEPRAZOLE. [Concomitant]
     Active Substance: OMEPRAZOLE
     Indication: ULCER HAEMORRHAGE
  9. ALLOPURINOL. [Concomitant]
     Active Substance: ALLOPURINOL
     Indication: HYPOVITAMINOSIS
  10. LEFLUNOMIDE. [Concomitant]
     Active Substance: LEFLUNOMIDE
     Indication: RHEUMATOID ARTHRITIS
  11. VITAMIN D [Concomitant]
     Active Substance: CHOLECALCIFEROL
     Indication: HYPOVITAMINOSIS

REACTIONS (9)
  - Musculoskeletal pain [Unknown]
  - Back pain [Not Recovered/Not Resolved]
  - Rheumatoid arthritis [Recovering/Resolving]
  - Gait disturbance [Unknown]
  - Intervertebral disc protrusion [Not Recovered/Not Resolved]
  - Road traffic accident [Not Recovered/Not Resolved]
  - Arthralgia [Unknown]
  - Neck pain [Unknown]
  - Headache [Unknown]

NARRATIVE: CASE EVENT DATE: 2016
